FAERS Safety Report 5549887-X (Version None)
Quarter: 2007Q4

REPORT INFORMATION
  Report Type: 
  Country: None (occurrence: None)
  Receive Date: 20071212
  Receipt Date: 20071210
  Transmission Date: 20080405
  Serious: Yes (Death, Life-Threatening, Other)
  Sender: FDA-Public Use
  Company Number: FR-BRISTOL-MYERS SQUIBB COMPANY-14010003

PATIENT
  Age: 33 Year
  Sex: Female

DRUGS (5)
  1. COUMADIN [Suspect]
     Indication: DEEP VEIN THROMBOSIS
     Dates: start: 20070713
  2. LOVENOX [Suspect]
     Indication: DEEP VEIN THROMBOSIS
     Dates: start: 20070702, end: 20070713
  3. EFFEXOR [Concomitant]
     Indication: EPILEPSY
     Route: 042
     Dates: start: 20070501, end: 20070601
  4. KEPPRA [Concomitant]
     Indication: EPILEPSY
     Dates: start: 20070702
  5. RIVOTRIL [Concomitant]
     Indication: EPILEPSY
     Dates: start: 20070702

REACTIONS (2)
  - FALL [None]
  - SUBDURAL HAEMATOMA [None]
